FAERS Safety Report 24077961 (Version 1)
Quarter: 2024Q3

REPORT INFORMATION
  Report Type: Report from Study
  Country: GB (occurrence: GB)
  Receive Date: 20240711
  Receipt Date: 20240711
  Transmission Date: 20241017
  Serious: Yes (Other)
  Sender: SANDOZ
  Company Number: GB-002147023-NVSC2022GB121373

PATIENT
  Sex: Female

DRUGS (1)
  1. HYRIMOZ [Suspect]
     Active Substance: ADALIMUMAB-ADAZ
     Indication: Crohn^s disease
     Dosage: 40 MG, EOW (EVERY OTHER WEEK)
     Route: 058

REACTIONS (9)
  - Tooth fracture [Unknown]
  - Fall [Unknown]
  - Back disorder [Unknown]
  - COVID-19 [Unknown]
  - Depression [Unknown]
  - Fatigue [Unknown]
  - Anxiety [Unknown]
  - Abdominal pain [Unknown]
  - Product dose omission issue [Unknown]
